FAERS Safety Report 4313276-6 (Version None)
Quarter: 2004Q1

REPORT INFORMATION
  Report Type: 
  Country: None (occurrence: None)
  Receive Date: 20040304
  Receipt Date: 20040217
  Transmission Date: 20041129
  Serious: Yes (Hospitalization)
  Sender: FDA-Public Use
  Company Number: 192703

PATIENT
  Age: 43 Year
  Sex: Female
  Weight: 59 kg

DRUGS (3)
  1. AVONEX [Suspect]
     Indication: MULTIPLE SCLEROSIS
     Dosage: 15 MCG QW IM
     Route: 030
     Dates: start: 20030902, end: 20040106
  2. AVONEX [Suspect]
     Indication: MULTIPLE SCLEROSIS
     Dosage: 30 MCG QW IM
     Route: 030
     Dates: start: 20040107
  3. BACLOFEN [Concomitant]

REACTIONS (3)
  - ATAXIA [None]
  - MULTIPLE SCLEROSIS RELAPSE [None]
  - WHITE BLOOD CELL COUNT INCREASED [None]
